FAERS Safety Report 20702616 (Version 1)
Quarter: 2022Q2

REPORT INFORMATION
  Report Type: Spontaneous
  Country: US (occurrence: US)
  Receive Date: 20220412
  Receipt Date: 20220412
  Transmission Date: 20220721
  Serious: No
  Sender: FDA-Public Use
  Company Number: US-MACROGENICS-2022000025

PATIENT
  Age: 88 Year
  Sex: Female
  Weight: 62.585 kg

DRUGS (3)
  1. MARGENZA [Suspect]
     Active Substance: MARGETUXIMAB-CMKB
     Indication: Triple negative breast cancer
     Dosage: 900 MILLIGRAM, SINGLE
     Route: 042
     Dates: start: 20220103, end: 20220103
  2. NAVELBINE [Concomitant]
     Active Substance: VINORELBINE TARTRATE
     Indication: Product used for unknown indication
     Dosage: UNK, AS DIRECTED
     Route: 042
     Dates: start: 20220103, end: 20220103
  3. ZOFRAN [Concomitant]
     Active Substance: ONDANSETRON HYDROCHLORIDE
     Indication: Product used for unknown indication
     Dosage: UNK, AS DIRECTED
     Route: 065
     Dates: start: 20220103, end: 20220103

REACTIONS (1)
  - Abdominal pain [Recovered/Resolved]

NARRATIVE: CASE EVENT DATE: 20220103
